FAERS Safety Report 4655600-0 (Version None)
Quarter: 2005Q2

REPORT INFORMATION
  Report Type: 
  Country: None (occurrence: None)
  Receive Date: 20050505
  Receipt Date: 20050425
  Transmission Date: 20051028
  Serious: Yes (Hospitalization)
  Sender: FDA-Public Use
  Company Number: HQWYE375827APR05

PATIENT
  Age: 71 Year
  Sex: Male
  Weight: 90.8 kg

DRUGS (3)
  1. CORDARONE [Suspect]
     Indication: ARRHYTHMIA
     Dosage: 200 MG 1X PER 1 DAY, ORAL
     Route: 048
     Dates: start: 20000101, end: 20050421
  2. NIFEDIPINE [Concomitant]
  3. SPIRONOLACTONE [Concomitant]

REACTIONS (5)
  - CHEST PAIN [None]
  - CORONARY ARTERY OCCLUSION [None]
  - DYSPNOEA [None]
  - MYALGIA [None]
  - SYNCOPE [None]
